FAERS Safety Report 4303665-8 (Version None)
Quarter: 2004Q1

REPORT INFORMATION
  Report Type: 
  Country: None (occurrence: None)
  Receive Date: 20040224
  Receipt Date: 20040224
  Transmission Date: 20041129
  Serious: Yes (Life-Threatening, Hospitalization)
  Sender: FDA-Public Use
  Company Number: None

PATIENT
  Age: 52 Year
  Sex: Female
  Weight: 61.2356 kg

DRUGS (2)
  1. VANCOMYCIN [Suspect]
     Indication: KIDNEY INFECTION
     Dosage: IV
     Route: 042
     Dates: start: 20031114, end: 20031207
  2. VANCOMYCIN [Suspect]
     Indication: SEPSIS
     Dosage: IV
     Route: 042
     Dates: start: 20031114, end: 20031207

REACTIONS (1)
  - UNEVALUABLE EVENT [None]
